FAERS Safety Report 17237987 (Version 1)
Quarter: 2020Q1

REPORT INFORMATION
  Report Type: Spontaneous
  Country: US (occurrence: US)
  Receive Date: 20200106
  Receipt Date: 20200106
  Transmission Date: 20200409
  Serious: No
  Sender: FDA-Public Use
  Company Number: US-PACIRA-201900050

PATIENT
  Age: 74 Year
  Sex: Female

DRUGS (1)
  1. EXPAREL [Suspect]
     Active Substance: BUPIVACAINE
     Indication: VULVAL OPERATION
     Dosage: 532 MG, SINGLE, FREQUENCY : SINGLE

REACTIONS (2)
  - No adverse event [Unknown]
  - Extra dose administered [Unknown]
